FAERS Safety Report 5317110-7 (Version None)
Quarter: 2007Q2

REPORT INFORMATION
  Report Type: 
  Country: None (occurrence: None)
  Receive Date: 20070504
  Receipt Date: 20070423
  Transmission Date: 20071010
  Serious: Yes (Hospitalization)
  Sender: FDA-Public Use
  Company Number: TW-PFIZER INC-2006081783

PATIENT
  Sex: Male
  Weight: 63.5 kg

DRUGS (22)
  1. SU-011,248 [Suspect]
     Indication: METASTATIC RENAL CELL CARCINOMA
     Route: 048
     Dates: start: 20060330, end: 20060627
  2. SU-011,248 [Suspect]
     Route: 048
     Dates: start: 20060906, end: 20060910
  3. SU-011,248 [Suspect]
     Route: 048
  4. TRETOQUINOL [Concomitant]
     Route: 048
     Dates: start: 20070421, end: 20070422
  5. AMBROXOL HYDROCHLORIDE [Concomitant]
     Route: 048
     Dates: start: 20070421, end: 20070422
  6. CEFACLOR [Concomitant]
     Route: 048
     Dates: start: 20070421, end: 20070422
  7. CLOFEDANOL [Concomitant]
     Route: 048
     Dates: start: 20070421, end: 20070422
  8. FORMOTEROL FUMARATE [Concomitant]
     Route: 048
     Dates: start: 20070421, end: 20070422
  9. OXOLAMINE CITRATE [Concomitant]
     Route: 048
     Dates: start: 20070421, end: 20070422
  10. ALL OTHER THERAPEUTIC PRODUCTS [Concomitant]
     Route: 048
  11. HYDROTALCITE [Concomitant]
  12. CEPHALEXIN [Concomitant]
     Route: 048
     Dates: start: 20060622, end: 20060623
  13. ALFUZOSIN HYDROCHLORIDE [Concomitant]
     Route: 048
     Dates: start: 20060622, end: 20060626
  14. TERAZOSIN HYDROCHLORIDE [Concomitant]
     Route: 048
     Dates: start: 20060626
  15. TERAZOSIN HYDROCHLORIDE [Concomitant]
     Dates: start: 20070111
  16. DOXAZOSIN MESYLATE [Concomitant]
     Route: 048
     Dates: start: 20060608, end: 20060621
  17. BORRAGINOL-N [Concomitant]
     Dates: start: 20060624, end: 20060624
  18. MAGNESIUM OXIDE [Concomitant]
     Route: 048
     Dates: start: 20070421, end: 20070422
  19. BISACODYL [Concomitant]
     Route: 048
     Dates: start: 20060720, end: 20060725
  20. COUGH MIXTURE A [Concomitant]
     Route: 048
     Dates: start: 20060701, end: 20060726
  21. FLAVOXATE HCL [Concomitant]
     Route: 048
     Dates: start: 20060714
  22. PREDNISOLONE [Concomitant]
     Route: 048

REACTIONS (3)
  - HYPONATRAEMIA [None]
  - PERIANAL ABSCESS [None]
  - URINARY RETENTION [None]
